FAERS Safety Report 17214880 (Version 1)
Quarter: 2019Q4

REPORT INFORMATION
  Report Type: Spontaneous
  Country: US (occurrence: US)
  Receive Date: 20191230
  Receipt Date: 20191230
  Transmission Date: 20200122
  Serious: Yes (Other)
  Sender: FDA-Public Use
  Company Number: US-UNITED THERAPEUTICS-UNT-2019-021310

PATIENT
  Sex: Male

DRUGS (3)
  1. UNITUXIN [Suspect]
     Active Substance: DINUTUXIMAB
     Indication: PRODUCT USED FOR UNKNOWN INDICATION
     Dosage: 15TH CYCLE
     Route: 041
  2. IRINOTECAN [Suspect]
     Active Substance: IRINOTECAN
     Indication: PRODUCT USED FOR UNKNOWN INDICATION
     Dosage: 15TH CYCLE
     Route: 065
  3. TEMODAR [Suspect]
     Active Substance: TEMOZOLOMIDE
     Indication: PRODUCT USED FOR UNKNOWN INDICATION
     Dosage: 15TH CYCLE
     Route: 065

REACTIONS (1)
  - Hallucination [Recovered/Resolved]
